FAERS Safety Report 10020099 (Version 3)
Quarter: 2014Q2

REPORT INFORMATION
  Report Type: Spontaneous
  Country: US (occurrence: US)
  Receive Date: 20140318
  Receipt Date: 20140428
  Transmission Date: 20141212
  Serious: No
  Sender: FDA-Public Use
  Company Number: US-009507513-1403USA005526

PATIENT
  Sex: Male
  Weight: 74.38 kg

DRUGS (1)
  1. PEGINTRON [Suspect]
     Indication: HEPATITIS C
     Dosage: 150 MICROGRAM, WEEKLY
     Route: 058
     Dates: start: 20140224

REACTIONS (1)
  - Pyrexia [Unknown]
